FAERS Safety Report 9657091 (Version 3)
Quarter: 2014Q1

REPORT INFORMATION
  Report Type: Report from Study
  Country: DE (occurrence: TR)
  Receive Date: 20131030
  Receipt Date: 20140107
  Transmission Date: 20141002
  Serious: Yes (Death)
  Sender: FDA-Public Use
  Company Number: DE-ACTELION-A-NJ2013-90523

PATIENT
  Age: 54 Year
  Sex: Male

DRUGS (1)
  1. VENTAVIS [Suspect]
     Indication: PULMONARY ARTERIAL HYPERTENSION
     Dosage: UNK, 8XDAILY
     Route: 055
     Dates: start: 20110428, end: 20130920

REACTIONS (1)
  - Pulmonary arterial hypertension [Fatal]
